FAERS Safety Report 16469595 (Version 1)
Quarter: 2019Q3

REPORT INFORMATION
  Report Type: Spontaneous
  Country: US (occurrence: US)
  Receive Date: 20190623
  Receipt Date: 20190623
  Transmission Date: 20191004
  Serious: Yes (Disabling)
  Sender: FDA-Public Use
  Company Number: None

PATIENT
  Age: 56 Year
  Sex: Female
  Weight: 61.2 kg

DRUGS (5)
  1. CENTRUM SILVER [Concomitant]
     Active Substance: MINERALS\VITAMINS
  2. B3 [Concomitant]
  3. CALCIUM WITH VITAMIN D [Concomitant]
     Active Substance: CALCIUM\VITAMIN D
  4. LEVAQUIN [Suspect]
     Active Substance: LEVOFLOXACIN
     Indication: INFECTION PROPHYLAXIS
     Dates: start: 20161005, end: 20161009
  5. FROVA [Concomitant]
     Active Substance: FROVATRIPTAN SUCCINATE

REACTIONS (13)
  - Crying [None]
  - Tremor [None]
  - Seizure [None]
  - Neurological symptom [None]
  - Insomnia [None]
  - Drug hypersensitivity [None]
  - Multiple sclerosis [None]
  - Toxicity to various agents [None]
  - Impaired healing [None]
  - Meniscus injury [None]
  - Emotional distress [None]
  - Carpal tunnel decompression [None]
  - Dyskinesia [None]

NARRATIVE: CASE EVENT DATE: 20161007
